FAERS Safety Report 22687428 (Version 3)
Quarter: 2023Q4

REPORT INFORMATION
  Report Type: Spontaneous
  Country: US (occurrence: US)
  Receive Date: 20230710
  Receipt Date: 20231025
  Transmission Date: 20240110
  Serious: No
  Sender: FDA-Public Use
  Company Number: US-SA-SAC20230707000715

PATIENT
  Sex: Male

DRUGS (1)
  1. DUPIXENT [Suspect]
     Active Substance: DUPILUMAB
     Indication: Dermatitis atopic
     Dosage: 300 MG, QOW
     Route: 058

REACTIONS (8)
  - Diarrhoea [Unknown]
  - Skin weeping [Unknown]
  - Skin fissures [Unknown]
  - Infection [Recovered/Resolved]
  - Pyrexia [Recovered/Resolved]
  - Pruritus [Unknown]
  - Injection site rash [Unknown]
  - Injection site erythema [Unknown]

NARRATIVE: CASE EVENT DATE: 20231001
